FAERS Safety Report 22928385 (Version 3)
Quarter: 2023Q4

REPORT INFORMATION
  Report Type: Report from Study
  Country: US (occurrence: US)
  Receive Date: 20230911
  Receipt Date: 20231019
  Transmission Date: 20240110
  Serious: Yes (Hospitalization, Other)
  Sender: FDA-Public Use
  Company Number: US-TAKEDA-2023TUS077009

PATIENT
  Sex: Male
  Weight: 95 kg

DRUGS (13)
  1. HUMAN IMMUNOGLOBULIN G [Suspect]
     Active Substance: HUMAN IMMUNOGLOBULIN G
     Indication: Immunodeficiency common variable
     Dosage: UNK UNK, Q4WEEKS
     Route: 042
     Dates: start: 20230629
  2. DIPHENHYDRAMINE [Concomitant]
     Active Substance: DIPHENHYDRAMINE
     Dosage: UNK
     Route: 065
  3. ACYCLOVIR [Concomitant]
     Active Substance: ACYCLOVIR
     Dosage: UNK
     Route: 065
  4. METOPROLOL SUCCINATE [Concomitant]
     Active Substance: METOPROLOL SUCCINATE
     Dosage: UNK
     Route: 065
  5. SODIUM CHLORIDE [Concomitant]
     Active Substance: SODIUM CHLORIDE
     Dosage: UNK
     Route: 065
  6. EPINEPHRINE [Concomitant]
     Active Substance: EPINEPHRINE
     Dosage: UNK
     Route: 065
  7. VENCLEXTA [Concomitant]
     Active Substance: VENETOCLAX
     Dosage: UNK
     Route: 065
  8. ACETAMINOPHEN [Concomitant]
     Active Substance: ACETAMINOPHEN
     Dosage: UNK
     Route: 065
  9. MIRALAX [Concomitant]
     Active Substance: POLYETHYLENE GLYCOL 3350
     Dosage: UNK
     Route: 065
  10. VITAMIN D3 [Concomitant]
     Active Substance: CHOLECALCIFEROL
     Dosage: UNK
     Route: 065
  11. PENTAMIDINE ISETHIONATE [Concomitant]
     Active Substance: PENTAMIDINE ISETHIONATE
     Dosage: UNK
     Route: 065
  12. LIDOCAINE [Concomitant]
     Active Substance: LIDOCAINE
     Dosage: UNK
     Route: 065
  13. DIGOXIN [Concomitant]
     Active Substance: DIGOXIN
     Dosage: UNK
     Route: 065

REACTIONS (7)
  - Neoplasm malignant [Unknown]
  - COVID-19 [Unknown]
  - Hypercalcaemia [Unknown]
  - Anaemia [Unknown]
  - Chills [Recovered/Resolved]
  - Pain in extremity [Recovered/Resolved]
  - Product use issue [Unknown]
